FAERS Safety Report 12667012 (Version 1)
Quarter: 2016Q3

REPORT INFORMATION
  Report Type: Spontaneous
  Country: US (occurrence: None)
  Receive Date: 20160818
  Receipt Date: 20160818
  Transmission Date: 20161109
  Serious: Yes (Hospitalization)
  Sender: FDA-Public Use
  Company Number: None

PATIENT
  Age: 48 Year
  Sex: Male
  Weight: 75.3 kg

DRUGS (8)
  1. HYDROXYZINE [Concomitant]
     Active Substance: HYDROXYZINE\HYDROXYZINE HYDROCHLORIDE
  2. FLUPHENAZINE, 10 MG [Suspect]
     Active Substance: FLUPHENAZINE
     Route: 048
     Dates: start: 20160720, end: 20160722
  3. LITHIUM. [Concomitant]
     Active Substance: LITHIUM
  4. BENZTROPINE [Concomitant]
     Active Substance: BENZTROPINE
  5. DIVALPROEX DR [Concomitant]
     Active Substance: DIVALPROEX SODIUM
  6. BUPROPION HYDROCHLORIDE XL [Concomitant]
     Active Substance: BUPROPION HYDROCHLORIDE
  7. ZIPRASIDONE HCL [Concomitant]
     Active Substance: ZIPRASIDONE HYDROCHLORIDE
  8. DIPHENHYDRAMINE. [Concomitant]
     Active Substance: DIPHENHYDRAMINE

REACTIONS (6)
  - Tremor [None]
  - Confusional state [None]
  - Insomnia [None]
  - Hallucination [None]
  - Neuroleptic malignant syndrome [None]
  - Disorientation [None]

NARRATIVE: CASE EVENT DATE: 20160724
